FAERS Safety Report 7041641-5 (Version None)
Quarter: 2010Q4

REPORT INFORMATION
  Report Type: 
  Country: None (occurrence: None)
  Receive Date: 20101013
  Receipt Date: 20091228
  Transmission Date: 20110411
  Serious: No
  Sender: FDA-Public Use
  Company Number: US-ASTRAZENECA-2009SE33810

PATIENT
  Age: 26363 Day
  Sex: Female

DRUGS (7)
  1. SYMBICORT [Suspect]
     Indication: ASTHMA
     Route: 055
     Dates: start: 20091214
  2. VENTOLIN [Concomitant]
  3. NIASPAN [Concomitant]
  4. ALDACTONE [Concomitant]
  5. FLUTICASONE NASAL SPRAY [Concomitant]
  6. ASPIRIN [Concomitant]
  7. SINGULAIR [Concomitant]

REACTIONS (1)
  - AGEUSIA [None]
